FAERS Safety Report 8855015 (Version 1)
Quarter: 2012Q4

REPORT INFORMATION
  Report Type: 
  Country: US (occurrence: US)
  Receive Date: 20121023
  Receipt Date: 20121023
  Transmission Date: 20130627
  Serious: No
  Sender: FDA-Public Use
  Company Number: US-PFIZER INC-2012260490

PATIENT
  Sex: Female

DRUGS (2)
  1. NORVASC [Suspect]
     Dosage: 10 mg, UNK
  2. LIPITOR [Suspect]
     Dosage: 40 mg, UNK

REACTIONS (1)
  - Influenza [Unknown]
